FAERS Safety Report 6734094-5 (Version None)
Quarter: 2010Q2

REPORT INFORMATION
  Report Type: 
  Country: None (occurrence: None)
  Receive Date: 20100518
  Receipt Date: 20100510
  Transmission Date: 20101027
  Serious: Yes (Life-Threatening, Hospitalization, Other)
  Sender: FDA-Public Use
  Company Number: TPA2010A02641

PATIENT
  Age: 39 Year
  Sex: Male
  Weight: 92.0802 kg

DRUGS (4)
  1. ULORIC [Suspect]
     Indication: GOUTY TOPHUS
     Dosage: 40 MG, 1 IN 1 D, PER ORAL
     Route: 048
     Dates: start: 20100210, end: 20100228
  2. COLCHICINE (COLCHICINE) [Concomitant]
  3. HYDROCODONE (HYDROCODONE) [Concomitant]
  4. WELLBUTRIN [Concomitant]

REACTIONS (3)
  - BLOOD TRIGLYCERIDES INCREASED [None]
  - DRUG INEFFECTIVE [None]
  - PULMONARY EMBOLISM [None]
